FAERS Safety Report 7346239-7 (Version None)
Quarter: 2011Q1

REPORT INFORMATION
  Report Type: 
  Country: None (occurrence: None)
  Receive Date: 20110311
  Receipt Date: 20110302
  Transmission Date: 20110831
  Serious: No
  Sender: FDA-Public Use
  Company Number: US-PFIZER INC-2011047825

PATIENT
  Sex: Male

DRUGS (2)
  1. ADVIL [Suspect]
     Indication: PAIN
     Dosage: UNK
  2. TYLENOL [Suspect]
     Indication: PAIN
     Dosage: UNK

REACTIONS (1)
  - DRUG INEFFECTIVE [None]
